FAERS Safety Report 9643016 (Version 1)
Quarter: 2013Q4

REPORT INFORMATION
  Report Type: Spontaneous
  Country: IT (occurrence: None)
  Receive Date: 20131022
  Receipt Date: 20131022
  Transmission Date: 20140711
  Serious: Yes (Hospitalization)
  Sender: FDA-Public Use
  Company Number: SYM-2013-11688

PATIENT
  Age: 70 Year
  Sex: Female

DRUGS (8)
  1. ELONTRIL [Suspect]
     Indication: PRODUCT USED FOR UNKNOWN INDICATION
     Dates: start: 20130720
  2. ZOLPIDEM TARTRATE (ZOLPIDEM TARTRATE) (ZOLPIDEM TARTRATE) [Concomitant]
  3. LORAZEPAM (LARAZEPAM) (LORAZEPAM) [Concomitant]
  4. CARDIOASPIRIN 9ACETYLSALICYLIC ACID) (ACETYLSALICYLIC ACID) [Concomitant]
  5. ZOLOFT (SERTRALINE HYDRCHLORIDE) (SERTRALINE HYDROCHLORIDE) [Concomitant]
  6. CARBOLITHIUM (LITHIUM CARBONATE)(LITHIUM CARBONATE) [Concomitant]
  7. ONCO-CARBIDE (HYDROXYCARBAMIDE) (HYDROXYCARBAMIDE) [Concomitant]
  8. ANTIDEPRESSANT (OTHER THERAPEUTIC PRODUCT) (NULL) [Concomitant]

REACTIONS (3)
  - Somnolence [None]
  - Clonus [None]
  - Drug abuse [None]
